FAERS Safety Report 6032266-9 (Version None)
Quarter: 2008Q4

REPORT INFORMATION
  Report Type: 
  Country: None (occurrence: None)
  Receive Date: 20081224
  Receipt Date: 20081217
  Transmission Date: 20090506
  Serious: Yes (Other)
  Sender: FDA-Public Use
  Company Number: THYM-1000852

PATIENT
  Age: 45 Year
  Sex: Female
  Weight: 94.8 kg

DRUGS (5)
  1. ANTI-THYMOCYTE GLOBULIN RABBIT NOS [Suspect]
     Indication: RENAL TRANSPLANT
     Dosage: 1.5 MG, INTRAVENOUS
     Route: 042
     Dates: start: 20081023, end: 20081031
  2. PROGRAF [Concomitant]
  3. CELLCEPT [Concomitant]
  4. PREDNISOLONE ACETATE [Concomitant]
  5. RITUXIMAB [Concomitant]

REACTIONS (1)
  - BLOOD CREATININE INCREASED [None]
